FAERS Safety Report 9785883 (Version 1)
Quarter: 2013Q4

REPORT INFORMATION
  Report Type: Spontaneous
  Country: GB (occurrence: None)
  Receive Date: 20131223
  Receipt Date: 20131223
  Transmission Date: 20140711
  Serious: Yes (Other)
  Sender: FDA-Public Use
  Company Number: AUR-APL-2013-10580

PATIENT
  Age: 47 Year
  Sex: Male

DRUGS (2)
  1. CITALOPRAM (CITALOPRAM) [Suspect]
     Indication: PRODUCT USED FOR UNKNOWN INDICATION
     Dates: start: 20110809, end: 20120206
  2. CLOPIDOGREL (CLOPIDOGREL) [Suspect]
     Indication: ACUTE MYOCARDIAL INFARCTION
     Route: 048
     Dates: start: 20120203, end: 20131203

REACTIONS (5)
  - Dyspnoea [None]
  - Pharyngeal oedema [None]
  - Pharyngeal erythema [None]
  - Product substitution issue [None]
  - Angina pectoris [None]
